FAERS Safety Report 15232697 (Version 1)
Quarter: 2018Q3

REPORT INFORMATION
  Report Type: Spontaneous
  Country: US (occurrence: US)
  Receive Date: 20180709
  Receipt Date: 20180709
  Transmission Date: 20181010
  Serious: Yes (Hospitalization)
  Sender: FDA-Public Use
  Company Number: None

PATIENT
  Age: 26 Year
  Sex: Female
  Weight: 71 kg

DRUGS (4)
  1. HYDROCORTISONE SUCCINATE 100 MG [Concomitant]
     Dates: start: 20180708, end: 20180708
  2. EPINEPHRINE 0.3 MG [Concomitant]
     Dates: start: 20180708, end: 20180708
  3. DIPHENHYDRAMINE 50 MG [Concomitant]
     Dates: start: 20180708, end: 20180708
  4. RITUXAN [Suspect]
     Active Substance: RITUXIMAB
     Indication: LUPUS NEPHRITIS
     Route: 041
     Dates: start: 20180708, end: 20180708

REACTIONS (7)
  - Dysphonia [None]
  - Lip swelling [None]
  - Oropharyngeal pain [None]
  - Blood pressure decreased [None]
  - Chest discomfort [None]
  - Vomiting [None]
  - Eye swelling [None]

NARRATIVE: CASE EVENT DATE: 20180708
